FAERS Safety Report 12010846 (Version 5)
Quarter: 2016Q3

REPORT INFORMATION
  Report Type: Report from Study
  Country: US (occurrence: US)
  Receive Date: 20160205
  Receipt Date: 20160824
  Transmission Date: 20161109
  Serious: Yes (Death, Hospitalization)
  Sender: FDA-Public Use
  Company Number: US-ACTELION-A-NJ2016-130872

PATIENT
  Age: 52 Year
  Sex: Female

DRUGS (3)
  1. OPSUMIT [Suspect]
     Active Substance: MACITENTAN
     Indication: PULMONARY HYPERTENSION
     Dosage: 10 MG, QD
     Route: 048
     Dates: start: 20141020
  2. ADCIRCA [Concomitant]
     Active Substance: TADALAFIL
  3. REMODULIN [Concomitant]
     Active Substance: TREPROSTINIL

REACTIONS (11)
  - Blood sodium abnormal [Unknown]
  - Death [Fatal]
  - Blood potassium abnormal [Unknown]
  - Pulmonary arterial hypertension [Unknown]
  - Disease progression [Unknown]
  - Infusion site pain [Unknown]
  - Fluid retention [Unknown]
  - Pericardial effusion [Unknown]
  - Diarrhoea [Unknown]
  - Pulmonary oedema [Unknown]
  - Hypernatraemia [Unknown]

NARRATIVE: CASE EVENT DATE: 20160607
